FAERS Safety Report 10046905 (Version 3)
Quarter: 2014Q2

REPORT INFORMATION
  Report Type: Spontaneous
  Country: US (occurrence: US)
  Receive Date: 20140331
  Receipt Date: 20140617
  Transmission Date: 20141212
  Serious: Yes (Hospitalization)
  Sender: FDA-Public Use
  Company Number: US-BAYER-2014-047971

PATIENT
  Age: 46 Year
  Sex: Female
  Weight: 99.77 kg

DRUGS (4)
  1. YAZ [Suspect]
     Indication: CONTRACEPTION
     Dosage: UNK
     Dates: start: 20070429, end: 20120513
  2. FLEXERIL [Concomitant]
  3. TRAMADOL [Concomitant]
  4. NAPROXEN [Concomitant]

REACTIONS (4)
  - Pulmonary embolism [None]
  - Deep vein thrombosis [None]
  - Injury [None]
  - Peripheral artery thrombosis [None]
